FAERS Safety Report 8274638 (Version 2)
Quarter: 2013Q3

REPORT INFORMATION
  Report Type: Report from Study
  Country: RS (occurrence: RS)
  Receive Date: 20111205
  Receipt Date: 20130710
  Transmission Date: 20140515
  Serious: Yes (Hospitalization)
  Sender: FDA-Public Use
  Company Number: RS-CELGENEUS-308-21880-11113247

PATIENT
  Age: 63 Year
  Sex: Female
  Weight: 70 kg

DRUGS (19)
  1. REVLIMID [Suspect]
     Indication: PLASMA CELL MYELOMA
     Dosage: 25 MILLIGRAM
     Route: 048
     Dates: start: 20111114, end: 20111204
  2. REVLIMID [Suspect]
     Dosage: 15 MILLIGRAM
     Route: 048
     Dates: start: 20111220, end: 20120608
  3. DEXAMETHASONE [Suspect]
     Indication: PLASMA CELL MYELOMA
     Route: 065
     Dates: start: 20111114, end: 20111205
  4. DEXAMETHASONE [Suspect]
     Route: 065
     Dates: end: 20120604
  5. ACICLOVIR [Concomitant]
     Indication: ANTIVIRAL PROPHYLAXIS
     Dosage: 800 MILLIGRAM
     Route: 048
     Dates: start: 20111112, end: 20111118
  6. ASPIRIN PROTECT [Concomitant]
     Indication: ANTICOAGULANT THERAPY
     Dosage: 100 MILLIGRAM
     Route: 048
     Dates: start: 20111112, end: 20111118
  7. ASPIRIN PROTECT [Concomitant]
     Indication: ANTIPLATELET THERAPY
  8. LANZUL S [Concomitant]
     Indication: PROPHYLAXIS
     Dosage: 15 MILLIGRAM
     Route: 048
     Dates: start: 20111112, end: 20111118
  9. MAROCIN [Concomitant]
     Indication: ANTIBIOTIC PROPHYLAXIS
     Dosage: 500 MILLIGRAM
     Route: 048
     Dates: start: 20111112, end: 20111118
  10. ACTRAPID [Concomitant]
     Indication: HYPERGLYCAEMIA
     Dosage: 8 IU (INTERNATIONAL UNIT)
     Route: 058
     Dates: start: 20111121, end: 20111122
  11. FRAXIPARINE [Concomitant]
     Indication: THROMBOSIS PROPHYLAXIS
     Dosage: 1425 IU (INTERNATIONAL UNIT)
     Route: 058
     Dates: start: 20111121, end: 20111125
  12. GLUFORMIN [Concomitant]
     Indication: DIABETES MELLITUS
     Dosage: 500 MILLIGRAM
     Route: 048
     Dates: start: 2011
  13. SUPPOSITORIO GLICEROLI [Concomitant]
     Indication: CONSTIPATION
     Dosage: 2 SUPPOSITORIES
     Route: 054
     Dates: start: 20111122, end: 20111122
  14. RANISAN [Concomitant]
     Indication: PROPHYLAXIS
     Dosage: 100 MILLIGRAM
     Route: 041
     Dates: start: 20111118, end: 20111123
  15. RANISAN [Concomitant]
     Dosage: 50 MILLIGRAM
     Route: 041
     Dates: start: 20111124, end: 20111124
  16. PRINORM [Concomitant]
     Indication: HYPERTENSION
     Dosage: 25 MILLIGRAM
     Route: 048
     Dates: start: 2010
  17. PRILAZID [Concomitant]
     Indication: HYPERTENSION
     Dosage: 2.5 MILLIGRAM
     Route: 048
     Dates: start: 20111118
  18. CHOLIPAM [Concomitant]
     Indication: HYPERCHOLESTEROLAEMIA
     Dosage: 10 MILLIGRAM
     Route: 048
     Dates: start: 2010
  19. TRITACE [Concomitant]
     Indication: HYPERTENSION
     Dosage: 2.5 MILLIGRAM
     Route: 048
     Dates: start: 20111118, end: 20111124

REACTIONS (1)
  - Cytokine release syndrome [Recovered/Resolved]
